FAERS Safety Report 5491949-X (Version None)
Quarter: 2007Q4

REPORT INFORMATION
  Report Type: 
  Country: None (occurrence: None)
  Receive Date: 20071018
  Receipt Date: 20071018
  Transmission Date: 20080405
  Serious: Yes (Hospitalization)
  Sender: FDA-Public Use
  Company Number: None

PATIENT
  Age: 84 Year
  Sex: Male

DRUGS (2)
  1. WARFARIN SODIUM [Suspect]
     Indication: CORONARY ARTERY DISEASE
     Dosage: 10/7.5MG   OTHER   PO
     Route: 048
     Dates: start: 20021201
  2. WARFARIN SODIUM [Suspect]
     Indication: MYOCARDIAL INFARCTION
     Dosage: 10/7.5MG   OTHER   PO
     Route: 048
     Dates: start: 20021201

REACTIONS (10)
  - BLOOD URINE PRESENT [None]
  - CHROMATURIA [None]
  - CONTUSION [None]
  - DIARRHOEA [None]
  - FAECES DISCOLOURED [None]
  - HAEMATOCHEZIA [None]
  - HEPATIC FAILURE [None]
  - INTERNATIONAL NORMALISED RATIO INCREASED [None]
  - PANCREATIC NEOPLASM [None]
  - RECTAL HAEMORRHAGE [None]
